FAERS Safety Report 8338347-9 (Version None)
Quarter: 2012Q1

REPORT INFORMATION
  Report Type: 
  Country: None (occurrence: None)
  Receive Date: 20120329
  Receipt Date: 20081125
  Transmission Date: 20120608
  Serious: Yes (Other)
  Sender: FDA-Public Use
  Company Number: PHEH2008US10686

PATIENT
  Age: 41 Year
  Sex: Female
  Weight: 74.8 kg

DRUGS (1)
  1. LAMISIL [Suspect]
     Indication: ONYCHOMYCOSIS
     Dosage: 100 MG, QD, ORAL
     Route: 048
     Dates: start: 20080917, end: 20081118

REACTIONS (3)
  - WEIGHT DECREASED [None]
  - DYSGEUSIA [None]
  - AGEUSIA [None]
